FAERS Safety Report 22225814 (Version 1)
Quarter: 2023Q2

REPORT INFORMATION
  Report Type: Spontaneous
  Country: DE (occurrence: DE)
  Receive Date: 20230418
  Receipt Date: 20230418
  Transmission Date: 20230721
  Serious: Yes (Death, Life-Threatening, Hospitalization, Other)
  Sender: FDA-Public Use
  Company Number: DE-CELLTRION INC.-2022DE014916

PATIENT

DRUGS (28)
  1. RITUXIMAB [Suspect]
     Active Substance: RITUXIMAB
     Indication: Epstein-Barr virus infection reactivation
     Dosage: ADMINISTERED THREE TIMES, MOST RECENTLY 1 YEAR BEFORE THE HADV INFECTION OCCURRED
  2. RITUXIMAB [Suspect]
     Active Substance: RITUXIMAB
     Indication: Epstein-Barr virus infection reactivation
     Dosage: ADMINISTERED THREE TIMES, MOST RECENTLY 1 YEAR BEFORE THE HADV INFECTION OCCURRED
  3. RITUXIMAB [Suspect]
     Active Substance: RITUXIMAB
     Dosage: ADMINISTERED THREE TIMES, MOST RECENTLY 1 YEAR BEFORE THE HADV INFECTION OCCURRED
  4. RITUXIMAB [Suspect]
     Active Substance: RITUXIMAB
     Dosage: 3 TOTAL
  5. RUXOLITINIB [Suspect]
     Active Substance: RUXOLITINIB
     Indication: Graft versus host disease
  6. .ALPHA.1-PROTEINASE INHIBITOR HUMAN [Suspect]
     Active Substance: .ALPHA.1-PROTEINASE INHIBITOR HUMAN
     Indication: Graft versus host disease
  7. CIDOFOVIR [Suspect]
     Active Substance: CIDOFOVIR
     Indication: Adenovirus infection
     Dosage: 325 MG; APPLIED IMMEDIATELY AFTER HADV WAS DIAGNOSED
  8. CIDOFOVIR [Suspect]
     Active Substance: CIDOFOVIR
     Indication: Graft versus host disease
     Dosage: REDUCED TO 50 MG
  9. CIDOFOVIR [Suspect]
     Active Substance: CIDOFOVIR
     Dosage: 450 MG
  10. CIDOFOVIR [Suspect]
     Active Substance: CIDOFOVIR
     Dosage: UNK
  11. CYCLOSPORINE [Suspect]
     Active Substance: CYCLOSPORINE
     Indication: Graft versus host disease
  12. EVEROLIMUS [Suspect]
     Active Substance: EVEROLIMUS
     Indication: Graft versus host disease
  13. ETANERCEPT [Suspect]
     Active Substance: ETANERCEPT
     Indication: Graft versus host disease
  14. IMMUNE GLOBULIN NOS [Suspect]
     Active Substance: IMMUNE GLOBULIN NOS
     Indication: Adenovirus infection
     Dosage: APPLIED IMMEDIATELY AFTER HADV WAS DIAGNOSED
  15. MYCOPHENOLATE MOFETIL [Suspect]
     Active Substance: MYCOPHENOLATE MOFETIL
     Indication: Graft versus host disease
  16. PREDNISOLONE [Suspect]
     Active Substance: PREDNISOLONE
     Indication: Graft versus host disease in liver
     Dosage: 250 MG, ONCE/SINGLE
  17. PREDNISOLONE [Suspect]
     Active Substance: PREDNISOLONE
     Indication: Graft versus host disease in gastrointestinal tract
     Dosage: 250 MG, 1 TOTAL
  18. PREDNISOLONE [Suspect]
     Active Substance: PREDNISOLONE
     Indication: Graft versus host disease in skin
     Dosage: UNK
  19. PREDNISOLONE [Suspect]
     Active Substance: PREDNISOLONE
     Indication: Graft versus host disease
  20. ALEMTUZUMAB [Suspect]
     Active Substance: ALEMTUZUMAB
     Indication: Product used for unknown indication
     Dosage: UNK
  21. METHOTREXATE [Suspect]
     Active Substance: METHOTREXATE
     Indication: Immunosuppressant drug therapy
     Dosage: UNK
  22. BUDESONIDE [Suspect]
     Active Substance: BUDESONIDE
     Indication: Graft versus host disease in gastrointestinal tract
     Dosage: 9 MG, DAILY
  23. BUDESONIDE [Suspect]
     Active Substance: BUDESONIDE
     Indication: Graft versus host disease in skin
  24. BUDESONIDE [Suspect]
     Active Substance: BUDESONIDE
     Indication: Graft versus host disease
  25. TACROLIMUS [Suspect]
     Active Substance: TACROLIMUS
     Indication: Graft versus host disease
  26. THYMOCYTE IMMUNE GLOBULIN NOS [Suspect]
     Active Substance: THYMOCYTE IMMUNE GLOBULIN NOS
     Indication: Product use in unapproved indication
     Dosage: 1 TOTAL
  27. THYMOCYTE IMMUNE GLOBULIN NOS [Suspect]
     Active Substance: THYMOCYTE IMMUNE GLOBULIN NOS
     Dosage: UNK
  28. ECULIZUMAB [Concomitant]
     Active Substance: ECULIZUMAB
     Indication: Thrombotic microangiopathy

REACTIONS (18)
  - Multiple organ dysfunction syndrome [Fatal]
  - Acute hepatic failure [Fatal]
  - Cardiopulmonary failure [Fatal]
  - Lactic acidosis [Fatal]
  - Pulmonary embolism [Fatal]
  - Coagulopathy [Fatal]
  - Haemorrhage [Fatal]
  - Pneumonia adenoviral [Fatal]
  - Adenoviral hepatitis [Fatal]
  - Thrombotic microangiopathy [Fatal]
  - Pneumonia [Fatal]
  - Hepatitis [Fatal]
  - Adenovirus infection [Fatal]
  - Epstein-Barr virus infection reactivation [Fatal]
  - Drug ineffective [Fatal]
  - Off label use [Recovered/Resolved]
  - Product use in unapproved indication [Recovered/Resolved]
  - Off label use [Unknown]
